FAERS Safety Report 6772459-6 (Version None)
Quarter: 2010Q2

REPORT INFORMATION
  Report Type: 
  Country: None (occurrence: None)
  Receive Date: 20100616
  Receipt Date: 20090604
  Transmission Date: 20101027
  Serious: No
  Sender: FDA-Public Use
  Company Number: US-ASTRAZENECA-2009UW14234

PATIENT
  Age: 73 Year
  Sex: Female
  Weight: 73 kg

DRUGS (5)
  1. PULMICORT FLEXHALER [Suspect]
     Indication: ASTHMA
     Route: 055
     Dates: start: 20090126
  2. ACCOLATE [Concomitant]
  3. ZYRTEC [Concomitant]
  4. CARTIA XT [Concomitant]
  5. SYNTHROID [Concomitant]

REACTIONS (1)
  - CORNEAL DISORDER [None]
